FAERS Safety Report 7361304-6 (Version None)
Quarter: 2011Q1

REPORT INFORMATION
  Report Type: 
  Country: None (occurrence: None)
  Receive Date: 20110318
  Receipt Date: 20110224
  Transmission Date: 20110831
  Serious: Yes (Other)
  Sender: FDA-Public Use
  Company Number: A0916601A

PATIENT
  Sex: Female

DRUGS (8)
  1. ADVAIR DISKUS 100/50 [Suspect]
     Indication: CHRONIC OBSTRUCTIVE PULMONARY DISEASE
     Route: 055
     Dates: start: 20090101, end: 20090101
  2. PULMICORT [Concomitant]
  3. FLOVENT [Suspect]
     Indication: CHRONIC OBSTRUCTIVE PULMONARY DISEASE
     Dosage: 2PUFF TWICE PER DAY
     Route: 055
     Dates: start: 20050101
  4. VENTOLIN [Suspect]
     Route: 055
     Dates: start: 20100101, end: 20100101
  5. CATAPRES [Concomitant]
  6. ZESTRIL [Concomitant]
  7. NORVASC [Concomitant]
  8. BLOOD PRESSURE MEDICATION [Suspect]
     Dosage: 1TAB PER DAY
     Dates: start: 20090101, end: 20090101

REACTIONS (6)
  - DRUG INEFFECTIVE [None]
  - PNEUMONIA [None]
  - OEDEMA PERIPHERAL [None]
  - BLOOD PRESSURE INCREASED [None]
  - INTRAOCULAR PRESSURE INCREASED [None]
  - GLAUCOMA [None]
